FAERS Safety Report 7232359-4 (Version None)
Quarter: 2011Q1

REPORT INFORMATION
  Report Type: 
  Country: None (occurrence: None)
  Receive Date: 20110119
  Receipt Date: 20110111
  Transmission Date: 20110831
  Serious: Yes (Other)
  Sender: FDA-Public Use
  Company Number: FR-JNJFOC-20110103572

PATIENT
  Sex: Female

DRUGS (2)
  1. TOPIRAMATE [Suspect]
     Indication: PARTIAL SEIZURES
     Route: 065
  2. TOPIRAMATE [Suspect]
     Route: 065

REACTIONS (3)
  - VESICOURETERIC REFLUX [None]
  - GRAND MAL CONVULSION [None]
  - DRUG EXPOSURE DURING PREGNANCY [None]
